FAERS Safety Report 15648359 (Version 1)
Quarter: 2018Q4

REPORT INFORMATION
  Report Type: Spontaneous
  Country: US (occurrence: US)
  Receive Date: 20181122
  Receipt Date: 20181122
  Transmission Date: 20190205
  Serious: No
  Sender: FDA-Public Use
  Company Number: US-PFIZER INC-2018480844

PATIENT
  Age: 46 Year
  Sex: Female

DRUGS (1)
  1. IBRANCE [Suspect]
     Active Substance: PALBOCICLIB
     Indication: BREAST CANCER FEMALE
     Dosage: 125 MG, UNK

REACTIONS (23)
  - Myalgia [Unknown]
  - Depression [Unknown]
  - Malaise [Unknown]
  - Nausea [Unknown]
  - Rash [Unknown]
  - Pruritus [Unknown]
  - Arthralgia [Unknown]
  - Joint swelling [Unknown]
  - Dizziness [Unknown]
  - Dyspnoea [Unknown]
  - Decreased appetite [Unknown]
  - Nervousness [Unknown]
  - Vomiting [Unknown]
  - Insomnia [Unknown]
  - Anxiety [Unknown]
  - Dysgeusia [Unknown]
  - Hyperhidrosis [Unknown]
  - Asthenia [Unknown]
  - Constipation [Unknown]
  - Gastrointestinal disorder [Unknown]
  - Fatigue [Unknown]
  - Neck pain [Unknown]
  - Back pain [Unknown]
